FAERS Safety Report 9853555 (Version 1)
Quarter: 2014Q1

REPORT INFORMATION
  Report Type: Spontaneous
  Country: US (occurrence: US)
  Receive Date: 20140129
  Receipt Date: 20140129
  Transmission Date: 20141002
  Serious: No
  Sender: FDA-Public Use
  Company Number: US-TEVA-459280USA

PATIENT
  Age: 27 Year
  Sex: Female
  Weight: 90.8 kg

DRUGS (3)
  1. PARAGARD 380A [Suspect]
     Indication: CONTRACEPTION
     Route: 015
     Dates: start: 20131115, end: 20140127
  2. METFORMIN [Concomitant]
     Indication: POLYCYSTIC OVARIES
  3. ALDACTONE [Concomitant]
     Indication: POLYCYSTIC OVARIES

REACTIONS (1)
  - Device expulsion [Recovered/Resolved]
